FAERS Safety Report 20726366 (Version 1)
Quarter: 2022Q2

REPORT INFORMATION
  Report Type: Spontaneous
  Country: US (occurrence: US)
  Receive Date: 20220419
  Receipt Date: 20220419
  Transmission Date: 20220720
  Serious: Yes (Other)
  Sender: FDA-Public Use
  Company Number: US-BRISTOL-MYERS SQUIBB COMPANY-2022-021330

PATIENT
  Age: 94 Year
  Sex: Female
  Weight: 77.11 kg

DRUGS (3)
  1. ELIQUIS [Suspect]
     Active Substance: APIXABAN
     Indication: Cerebrovascular accident prophylaxis
     Dosage: DOSE : 5 MG;     FREQ : ONCE AT DAY AT NIGHT
     Route: 048
     Dates: start: 202106, end: 202201
  2. ATORVASTATIN [Concomitant]
     Active Substance: ATORVASTATIN
     Indication: Blood cholesterol
     Dosage: ATORVASTATIN 1 AT NIGHT FOR CHOLESTEROL
  3. VITAMIN D [Concomitant]
     Active Substance: VITAMIN D NOS
     Indication: Product used for unknown indication
     Dosage: VITAMIN D SUPPLEMENT 1 IN THE MORNING

REACTIONS (2)
  - Cerebral haemorrhage [Unknown]
  - Disorientation [Unknown]
